FAERS Safety Report 5801777-0 (Version None)
Quarter: 2008Q3

REPORT INFORMATION
  Report Type: 
  Country: None (occurrence: None)
  Receive Date: 20080703
  Receipt Date: 20080703
  Transmission Date: 20090109
  Serious: Yes (Life-Threatening, Hospitalization)
  Sender: FDA-Public Use
  Company Number: None

PATIENT
  Age: 65 Year
  Sex: Female
  Weight: 80.7403 kg

DRUGS (1)
  1. NITROFURANTOIN (MONOHYDRATE/MACROCRYSTALS) [Suspect]
     Dosage: 1 CAPSULE BY MOUTH TWICE DAILY
     Route: 048
     Dates: start: 20080630, end: 20080630

REACTIONS (13)
  - CHEST PAIN [None]
  - CHILLS [None]
  - COUGH [None]
  - DYSPNOEA [None]
  - HEADACHE [None]
  - HYPERHIDROSIS [None]
  - LUNG INJURY [None]
  - MALAISE [None]
  - NAUSEA [None]
  - RASH [None]
  - SOMNOLENCE [None]
  - VISION BLURRED [None]
  - VOMITING [None]
